FAERS Safety Report 19861025 (Version 1)
Quarter: 2021Q3

REPORT INFORMATION
  Report Type: Spontaneous
  Country: US (occurrence: US)
  Receive Date: 20210920
  Receipt Date: 20210920
  Transmission Date: 20211014
  Serious: Yes (Hospitalization)
  Sender: FDA-Public Use
  Company Number: US-PURDUE PHARMA-USA-2021-0284269

PATIENT
  Sex: Male

DRUGS (2)
  1. SENOKOT?S [Suspect]
     Active Substance: DOCUSATE SODIUM\SENNOSIDES
     Dosage: 2 TABLET, NOCTE
     Route: 048
     Dates: start: 20210914
  2. SENOKOT?S [Suspect]
     Active Substance: DOCUSATE SODIUM\SENNOSIDES
     Indication: PRODUCT USED FOR UNKNOWN INDICATION
     Dosage: UNK, PRN
     Route: 048

REACTIONS (2)
  - Drug ineffective [Unknown]
  - Localised infection [Unknown]

NARRATIVE: CASE EVENT DATE: 20210914
